FAERS Safety Report 6964525-7 (Version None)
Quarter: 2010Q3

REPORT INFORMATION
  Report Type: 
  Country: None (occurrence: None)
  Receive Date: 20100903
  Receipt Date: 20100830
  Transmission Date: 20110219
  Serious: Yes (Death)
  Sender: FDA-Public Use
  Company Number: CA-JNJFOC-20090100502

PATIENT
  Age: 24 Month
  Sex: Male
  Weight: 13 kg

DRUGS (3)
  1. TYLENOL W/ CODEINE [Suspect]
     Indication: POSTOPERATIVE ANALGESIA
     Dosage: 10 TO 12.5 MG OF CODEIN AND 120 MG OF ACETAMINOPHEN SYRUP
     Route: 048
  2. MEPERIDINE HCL [Concomitant]
     Route: 030
  3. DIMENHYDRINATE [Concomitant]
     Route: 030

REACTIONS (8)
  - BRONCHOPNEUMONIA [None]
  - DRUG TOXICITY [None]
  - FOREIGN BODY ASPIRATION [None]
  - PNEUMONIA ASPIRATION [None]
  - PYREXIA [None]
  - RESPIRATORY DEPRESSION [None]
  - TRACHEITIS [None]
  - WHEEZING [None]
